FAERS Safety Report 6514386-5 (Version None)
Quarter: 2009Q4

REPORT INFORMATION
  Report Type: 
  Country: None (occurrence: None)
  Receive Date: 20091223
  Receipt Date: 20091214
  Transmission Date: 20100525
  Serious: Yes (Hospitalization)
  Sender: FDA-Public Use
  Company Number: US-BIOGENIDEC-2009BI017150

PATIENT
  Age: 38 Year
  Sex: Female

DRUGS (2)
  1. TYSABRI [Suspect]
     Indication: MULTIPLE SCLEROSIS
     Route: 042
     Dates: start: 20081024
  2. KEPRA [Concomitant]
     Indication: CONVULSION
     Dates: start: 20070101

REACTIONS (6)
  - ANXIETY [None]
  - CONVULSION [None]
  - DEPRESSION [None]
  - INFLUENZA [None]
  - MULTIPLE SCLEROSIS [None]
  - STRESS [None]
